FAERS Safety Report 17832054 (Version 1)
Quarter: 2020Q2

REPORT INFORMATION
  Report Type: Spontaneous
  Country: NO (occurrence: NO)
  Receive Date: 20200528
  Receipt Date: 20200528
  Transmission Date: 20200714
  Serious: No
  Sender: FDA-Public Use
  Company Number: NO-ALKEM LABORATORIES LIMITED-NO-ALKEM-2020-00341

PATIENT
  Sex: Female

DRUGS (2)
  1. SOBRIL [Suspect]
     Active Substance: OXAZEPAM
     Indication: PRODUCT USED FOR UNKNOWN INDICATION
     Dosage: 500 MILLIGRAM, QD
     Route: 065
  2. OXYCODONE HYDROCHLORIDE. [Suspect]
     Active Substance: OXYCODONE HYDROCHLORIDE
     Indication: PRODUCT USED FOR UNKNOWN INDICATION
     Dosage: 11000 MILLIGRAM, QD
     Route: 065

REACTIONS (9)
  - Oedema peripheral [Unknown]
  - Hyperhidrosis [Unknown]
  - Disturbance in attention [Unknown]
  - Confusional state [Unknown]
  - Feeling abnormal [Unknown]
  - Fatigue [Unknown]
  - Constricted affect [Unknown]
  - Chills [Unknown]
  - Withdrawal syndrome [Unknown]
